FAERS Safety Report 8473991-X (Version None)
Quarter: 2012Q2

REPORT INFORMATION
  Report Type: 
  Country: None (occurrence: None)
  Receive Date: 20120628
  Receipt Date: 20120625
  Transmission Date: 20120825
  Serious: Yes (Other)
  Sender: FDA-Public Use
  Company Number: US-MYLANLABS-2012S1005518

PATIENT
  Age: 33 Year
  Sex: Male

DRUGS (4)
  1. FLUOXETINE [Concomitant]
  2. CLOZAPINE [Suspect]
     Dates: start: 20120306
  3. CLOZAPINE [Suspect]
     Indication: SCHIZOPHRENIA
     Dates: start: 20040901, end: 20120305
  4. CLOZAPINE [Suspect]
     Dates: start: 20120306

REACTIONS (2)
  - GRANULOCYTOPENIA [None]
  - LEUKOPENIA [None]
